FAERS Safety Report 15373477 (Version 9)
Quarter: 2019Q1

REPORT INFORMATION
  Report Type: Report from Study
  Country: CZ (occurrence: CZ)
  Receive Date: 20180912
  Receipt Date: 20190227
  Transmission Date: 20190417
  Serious: Yes (Hospitalization, Other)
  Sender: FDA-Public Use
  Company Number: PHHY2018CZ091165

PATIENT
  Age: 3 Year
  Sex: Female
  Weight: 15.2 kg

DRUGS (6)
  1. TRAMETINIB [Suspect]
     Active Substance: TRAMETINIB
     Indication: NEUROFIBROMATOSIS
     Dosage: 0.032 MG/KG, UNK
     Route: 048
     Dates: start: 20180731, end: 20180824
  2. VIGANTOL [Concomitant]
     Active Substance: CHOLECALCIFEROL
     Indication: PRODUCT USED FOR UNKNOWN INDICATION
     Dosage: QD
     Route: 065
  3. TRAMETINIB [Suspect]
     Active Substance: TRAMETINIB
     Dosage: UNK
     Route: 048
     Dates: end: 20190111
  4. TRAMETINIB [Suspect]
     Active Substance: TRAMETINIB
     Dosage: UNK
     Route: 048
     Dates: end: 20190116
  5. TRAMETINIB [Suspect]
     Active Substance: TRAMETINIB
     Dosage: 0.032 MG/KG, UNK
     Route: 048
     Dates: end: 20181022
  6. SUMETROLIM [Concomitant]
     Active Substance: SULFAMETHOXAZOLE\TRIMETHOPRIM
     Indication: PRODUCT USED FOR UNKNOWN INDICATION
     Dosage: (MONDAY AND TUESDAY)
     Route: 065

REACTIONS (21)
  - Pyrexia [Unknown]
  - Cough [Unknown]
  - Hypogammaglobulinaemia [Recovered/Resolved]
  - Dermatitis [Unknown]
  - Upper respiratory tract infection [Unknown]
  - Cystitis [Recovered/Resolved]
  - Cystitis [Recovered/Resolved]
  - Proteinuria [Recovering/Resolving]
  - Paronychia [Recovered/Resolved]
  - Influenza [Unknown]
  - Henoch-Schonlein purpura [Recovering/Resolving]
  - Haematuria [Recovering/Resolving]
  - Staphylococcal infection [Recovered/Resolved]
  - Infection [Unknown]
  - Aspartate aminotransferase increased [Unknown]
  - Pyrexia [Recovered/Resolved]
  - Acne conglobata [Recovered/Resolved]
  - Viral infection [Recovered/Resolved]
  - Viral infection [Unknown]
  - Alanine aminotransferase increased [Unknown]
  - Blood lactate dehydrogenase increased [Unknown]

NARRATIVE: CASE EVENT DATE: 20180820
